FAERS Safety Report 13520161 (Version 3)
Quarter: 2020Q3

REPORT INFORMATION
  Report Type: Report from Study
  Country: CZ (occurrence: CZ)
  Receive Date: 20170507
  Receipt Date: 20170606
  Transmission Date: 20201104
  Serious: Yes (Hospitalization)
  Sender: FDA-Public Use
  Company Number: CZ-BAXTER-2017BAX019030

PATIENT
  Age: 38 Year
  Sex: Female
  Weight: 95 kg

DRUGS (5)
  1. OMEPRAZOLE. [Concomitant]
     Active Substance: OMEPRAZOLE
     Indication: PROPHYLAXIS
     Route: 048
     Dates: start: 20170327
  2. CARZAP [Concomitant]
     Indication: HYPERTENSION
     Route: 048
  3. AFITEN [Concomitant]
     Indication: HYPERTENSION
     Route: 048
  4. TISSEEL [Suspect]
     Active Substance: FIBRINOGEN HUMAN\THROMBIN HUMAN
     Indication: TISSUE SEALING
     Route: 061
     Dates: start: 20170403, end: 20170403
  5. AMEDO [Concomitant]
     Indication: HYPERCHOLESTEROLAEMIA
     Route: 048

REACTIONS (1)
  - Cerebrospinal fluid leakage [Recovered/Resolved]

NARRATIVE: CASE EVENT DATE: 20170423
